FAERS Safety Report 8057925-8 (Version None)
Quarter: 2011Q4

REPORT INFORMATION
  Report Type: 
  Country: None (occurrence: None)
  Receive Date: 20111220
  Receipt Date: 20111019
  Transmission Date: 20120403
  Serious: Yes (Other)
  Sender: FDA-Public Use
  Company Number: US013360

PATIENT
  Age: 37 Year
  Sex: Female

DRUGS (4)
  1. ACTIQ [Suspect]
     Indication: FIBROMYALGIA
     Dosage: , BU
     Route: 002
     Dates: start: 20010101
  2. ACTIQ [Suspect]
     Indication: MIGRAINE
     Dosage: , BU
     Route: 002
     Dates: start: 20010101
  3. ACTIQ [Suspect]
     Indication: SYSTEMIC LUPUS ERYTHEMATOSUS
     Dosage: , BU
     Route: 002
     Dates: start: 20010101
  4. MORHPINE [Concomitant]

REACTIONS (2)
  - MATERNAL EXPOSURE DURING PREGNANCY [None]
  - TOOTH DISORDER [None]
